FAERS Safety Report 6431174-9 (Version None)
Quarter: 2009Q4

REPORT INFORMATION
  Report Type: 
  Country: None (occurrence: None)
  Receive Date: 20091106
  Receipt Date: 20091103
  Transmission Date: 20100525
  Serious: Yes (Other)
  Sender: FDA-Public Use
  Company Number: FR-WYE-G04793909

PATIENT
  Age: 80 Year
  Sex: Male

DRUGS (2)
  1. TORISEL [Suspect]
     Indication: RENAL CANCER METASTATIC
     Dosage: 1 INJECTION (UNKNOWN DOSE)
     Route: 042
     Dates: start: 20091001, end: 20091001
  2. PREVISCAN [Concomitant]
     Dosage: UNKNOWN
     Dates: start: 19920101

REACTIONS (2)
  - PLATELET COUNT DECREASED [None]
  - PLATELET TOXICITY [None]
